FAERS Safety Report 21140818 (Version 1)
Quarter: 2022Q3

REPORT INFORMATION
  Report Type: Spontaneous
  Country: US (occurrence: US)
  Receive Date: 20220728
  Receipt Date: 20220728
  Transmission Date: 20221027
  Serious: No
  Sender: FDA-Public Use
  Company Number: US-UNITED THERAPEUTICS-UNT-2022-016569

PATIENT
  Sex: Female
  Weight: 69.841 kg

DRUGS (2)
  1. REMODULIN [Suspect]
     Active Substance: TREPROSTINIL
     Indication: Pulmonary arterial hypertension
     Dosage: UNK, CONTINUING
     Route: 041
     Dates: start: 20220518
  2. REMODULIN [Suspect]
     Active Substance: TREPROSTINIL
     Dosage: 0.025 ?G/KG, CONTINUING
     Route: 041
     Dates: start: 2022

REACTIONS (4)
  - Cough [Unknown]
  - Diarrhoea [Unknown]
  - Catheter site pruritus [Unknown]
  - Catheter site discharge [Unknown]

NARRATIVE: CASE EVENT DATE: 20220101
